FAERS Safety Report 9537101 (Version 2)
Quarter: 2013Q3

REPORT INFORMATION
  Report Type: Spontaneous
  Country: US (occurrence: US)
  Receive Date: 20130919
  Receipt Date: 20130927
  Transmission Date: 20140515
  Serious: Yes (Hospitalization, Other)
  Sender: FDA-Public Use
  Company Number: US-GILEAD-2013-0083655

PATIENT
  Sex: Female

DRUGS (1)
  1. LETAIRIS [Suspect]
     Indication: PULMONARY HYPERTENSION
     Dosage: 10 MG, QD
     Dates: start: 20120809

REACTIONS (6)
  - Pneumonia [Unknown]
  - Pneumomediastinum [Unknown]
  - Swelling face [Unknown]
  - Dysphagia [Unknown]
  - Aphonia [Unknown]
  - Dysgeusia [Unknown]
